FAERS Safety Report 25660222 (Version 1)
Quarter: 2025Q3

REPORT INFORMATION
  Report Type: Spontaneous
  Country: US (occurrence: None)
  Receive Date: 20250807
  Receipt Date: 20250807
  Transmission Date: 20251021
  Serious: Yes (Disabling)
  Sender: FDA-CTU
  Company Number: None

PATIENT
  Age: 69 Year
  Sex: Male
  Weight: 94.5 kg

DRUGS (1)
  1. TERBINAFINE [Suspect]
     Active Substance: TERBINAFINE
     Indication: Onychomycosis
     Dosage: OTHER QUANTITY : 30 TABLET(S);?FREQUENCY : DAILY;?
     Route: 048
     Dates: start: 20250625, end: 20250725

REACTIONS (9)
  - Anosmia [None]
  - Decreased appetite [None]
  - Ageusia [None]
  - Depressed mood [None]
  - Weight decreased [None]
  - Product complaint [None]
  - Formication [None]
  - Irritability [None]
  - Pain [None]

NARRATIVE: CASE EVENT DATE: 20250707
